FAERS Safety Report 5683080-5 (Version None)
Quarter: 2008Q1

REPORT INFORMATION
  Report Type: 
  Country: None (occurrence: None)
  Receive Date: 20080327
  Receipt Date: 20080318
  Transmission Date: 20080703
  Serious: Yes (Death, Hospitalization, Other)
  Sender: FDA-Public Use
  Company Number: IN-ELI_LILLY_AND_COMPANY-IN200711006584

PATIENT
  Sex: Male

DRUGS (3)
  1. ALIMTA [Suspect]
     Indication: NON-SMALL CELL LUNG CANCER
     Dosage: 500 MG/M2, UNKNOWN
     Route: 042
     Dates: start: 20071113
  2. MULTI-VITAMIN [Concomitant]
     Indication: PROPHYLAXIS
     Dosage: UNK, UNKNOWN
  3. FOLIC ACID [Concomitant]
     Indication: PROPHYLAXIS
     Dosage: UNK, UNKNOWN

REACTIONS (7)
  - ABDOMINAL PAIN [None]
  - DEATH [None]
  - DIARRHOEA [None]
  - HYPERKALAEMIA [None]
  - MUCOSAL INFLAMMATION [None]
  - NEUTROPENIA [None]
  - RASH ERYTHEMATOUS [None]
